FAERS Safety Report 5778960-6 (Version None)
Quarter: 2008Q2

REPORT INFORMATION
  Report Type: 
  Country: None (occurrence: None)
  Receive Date: 20080613
  Receipt Date: 20071204
  Transmission Date: 20081010
  Serious: Yes (Other)
  Sender: FDA-Public Use
  Company Number: 430050K07USA

PATIENT
  Age: 46 Year
  Sex: Female
  Weight: 86.1834 kg

DRUGS (1)
  1. NOVANTRONE [Suspect]
     Indication: MULTIPLE SCLEROSIS
     Dosage: 21.6 MG, 1 IN 3 MONTHS, INTRAVENOUS
     Route: 042
     Dates: start: 20050705, end: 20070601

REACTIONS (6)
  - EXTRAVASATION [None]
  - JOINT RANGE OF MOTION DECREASED [None]
  - OEDEMA PERIPHERAL [None]
  - PAIN [None]
  - SENSORY LOSS [None]
  - SKIN DISCOLOURATION [None]
